FAERS Safety Report 14334639 (Version 1)
Quarter: 2017Q4

REPORT INFORMATION
  Report Type: Spontaneous
  Country: US (occurrence: US)
  Receive Date: 20171228
  Receipt Date: 20171228
  Transmission Date: 20180321
  Serious: No
  Sender: FDA-Public Use
  Company Number: US-ASTRAZENECA-2013BM08284

PATIENT
  Age: 26218 Day
  Sex: Female
  Weight: 59.9 kg

DRUGS (2)
  1. SYMLIN [Suspect]
     Active Substance: PRAMLINTIDE ACETATE
     Indication: DIABETES MELLITUS
     Dosage: 30 MCG
     Route: 058
  2. SYMLIN [Suspect]
     Active Substance: PRAMLINTIDE ACETATE
     Indication: DIABETES MELLITUS
     Route: 058

REACTIONS (6)
  - Blood glucose increased [Unknown]
  - Product use issue [Unknown]
  - Visual impairment [Unknown]
  - Device issue [Unknown]
  - Malaise [Recovered/Resolved]
  - Drug dose omission [Unknown]

NARRATIVE: CASE EVENT DATE: 20171125
